FAERS Safety Report 4440587-6 (Version None)
Quarter: 2004Q3

REPORT INFORMATION
  Report Type: 
  Country: None (occurrence: None)
  Receive Date: 20040903
  Receipt Date: 20040823
  Transmission Date: 20050211
  Serious: Yes (Other)
  Sender: FDA-Public Use
  Company Number: PHBS2004AU11108

PATIENT
  Age: 21 Year
  Sex: Female

DRUGS (4)
  1. DICLOFENAC [Suspect]
     Indication: HEADACHE
     Dates: start: 19981201
  2. AMITRIPTYLINE HCL [Concomitant]
     Indication: HEADACHE
  3. TOBRAMYCIN [Suspect]
     Indication: PSEUDOMONAS INFECTION
  4. INSULIN [Concomitant]
     Indication: DIABETES MELLITUS

REACTIONS (16)
  - AUTONOMIC NEUROPATHY [None]
  - BLOOD CREATININE INCREASED [None]
  - BLOOD UREA INCREASED [None]
  - CREATININE RENAL CLEARANCE DECREASED [None]
  - DIABETIC RETINOPATHY [None]
  - GLOMERULOSCLEROSIS [None]
  - IMPAIRED GASTRIC EMPTYING [None]
  - LASER THERAPY [None]
  - LUNG DISORDER [None]
  - ORTHOSTATIC HYPOTENSION [None]
  - PROTEINURIA [None]
  - PSEUDOMONAS INFECTION [None]
  - RENAL FAILURE [None]
  - RENAL TUBULAR DISORDER [None]
  - VISUAL ACUITY REDUCED [None]
  - VOMITING [None]
